FAERS Safety Report 5701181-X (Version None)
Quarter: 2008Q2

REPORT INFORMATION
  Report Type: 
  Country: None (occurrence: None)
  Receive Date: 20080410
  Receipt Date: 20080317
  Transmission Date: 20081010
  Serious: No
  Sender: FDA-Public Use
  Company Number: US-BOEHRINGER INGELHEIM GMBH, GERMANY-2008-BP-00581BP

PATIENT
  Sex: Female

DRUGS (3)
  1. SPIRIVA [Suspect]
     Indication: CHRONIC OBSTRUCTIVE PULMONARY DISEASE
     Route: 055
     Dates: start: 20060101
  2. SPIRIVA [Suspect]
     Indication: ASTHMA
  3. BISOPROLOL FUMARATE [Concomitant]
     Indication: CARDIAC DISORDER

REACTIONS (5)
  - DYSPHONIA [None]
  - GLOSSITIS [None]
  - INCREASED UPPER AIRWAY SECRETION [None]
  - STOMATITIS [None]
  - THROAT TIGHTNESS [None]
